FAERS Safety Report 9550217 (Version 2)
Quarter: 2013Q4

REPORT INFORMATION
  Report Type: Report from Study
  Country: US (occurrence: US)
  Receive Date: 20130924
  Receipt Date: 20131023
  Transmission Date: 20140711
  Serious: Yes (Death, Other)
  Sender: FDA-Public Use
  Company Number: US-ROCHE-1280653

PATIENT
  Age: 53 Year
  Sex: Male
  Weight: 52.66 kg

DRUGS (10)
  1. CELLCEPT [Suspect]
     Indication: RENAL TRANSPLANT
     Route: 048
  2. CELLCEPT [Suspect]
     Indication: PANCREAS TRANSPLANT
     Route: 048
     Dates: start: 19961026, end: 20130920
  3. ATORVASTATIN [Concomitant]
  4. FUROSEMIDE [Concomitant]
  5. METOPROLOL TARTRATE [Concomitant]
  6. NIFEDIPINE [Concomitant]
  7. OMEPRAZOLE [Concomitant]
  8. PREDNISONE [Concomitant]
  9. SODIUM BICARBONATE [Concomitant]
  10. PROGRAF [Concomitant]

REACTIONS (3)
  - Pneumonia aspiration [Fatal]
  - Acute respiratory distress syndrome [Fatal]
  - Rectal cancer [Unknown]
